FAERS Safety Report 8599379-9 (Version None)
Quarter: 2012Q3

REPORT INFORMATION
  Report Type: 
  Country: None (occurrence: None)
  Receive Date: 20120816
  Receipt Date: 20120807
  Transmission Date: 20120928
  Serious: Yes (Hospitalization)
  Sender: FDA-Public Use
  Company Number: FR-ASTRAZENECA-2012SE56201

PATIENT
  Age: 44 Year
  Sex: Male

DRUGS (3)
  1. FLECAINIDE ACETATE [Concomitant]
  2. XYLOCAINE [Suspect]
     Route: 045
     Dates: start: 20120720
  3. BISOPROLOL FUMARATE [Concomitant]

REACTIONS (1)
  - ISCHAEMIC STROKE [None]
